FAERS Safety Report 4862252-3 (Version None)
Quarter: 2005Q4

REPORT INFORMATION
  Report Type: 
  Country: None (occurrence: None)
  Receive Date: 20051221
  Receipt Date: 20051213
  Transmission Date: 20060501
  Serious: Yes (Hospitalization, Other)
  Sender: FDA-Public Use
  Company Number: US-JNJFOC-20051102155

PATIENT
  Sex: Male
  Weight: 88.45 kg

DRUGS (5)
  1. REMICADE [Suspect]
     Route: 042
  2. REMICADE [Suspect]
     Route: 042
  3. 6-MP [Concomitant]
  4. PENTASA [Concomitant]
  5. PREDNISONE TAB [Concomitant]

REACTIONS (2)
  - LIGAMENT INJURY [None]
  - THROMBOSIS [None]
